FAERS Safety Report 10603122 (Version 2)
Quarter: 2018Q1

REPORT INFORMATION
  Report Type: Spontaneous
  Country: US (occurrence: US)
  Receive Date: 20141124
  Receipt Date: 20180305
  Transmission Date: 20180508
  Serious: No
  Sender: FDA-Public Use
  Company Number: US-PFIZER INC-2014322422

PATIENT
  Age: 54 Year
  Sex: Female
  Weight: 92 kg

DRUGS (2)
  1. LYRICA [Suspect]
     Active Substance: PREGABALIN
     Indication: PAIN
  2. LYRICA [Suspect]
     Active Substance: PREGABALIN
     Indication: FIBROMYALGIA
     Dosage: 150 MG, DAILY (50 MG IN MORNING AND 100 MG AT NIGHT)

REACTIONS (5)
  - Pain [Unknown]
  - Blood pressure increased [Unknown]
  - Stress [Unknown]
  - Scratch [Unknown]
  - Burning sensation [Unknown]
